FAERS Safety Report 8178445-6 (Version None)
Quarter: 2012Q1

REPORT INFORMATION
  Report Type: 
  Country: None (occurrence: None)
  Receive Date: 20120301
  Receipt Date: 20120228
  Transmission Date: 20120608
  Serious: No
  Sender: FDA-Public Use
  Company Number: US-PFIZER INC-2012054238

PATIENT
  Sex: Female
  Weight: 129.71 kg

DRUGS (3)
  1. SYNTHROID [Concomitant]
     Indication: THYROID DISORDER
     Dosage: 150 UG, DAILY
     Route: 048
  2. CHANTIX [Suspect]
     Indication: SMOKING CESSATION THERAPY
     Dosage: 0.5 MG, DAILY
     Route: 048
  3. CHANTIX [Suspect]
     Dosage: 1 MG, 2X/DAY
     Route: 048

REACTIONS (1)
  - NIGHTMARE [None]
